FAERS Safety Report 18812046 (Version 1)
Quarter: 2021Q1

REPORT INFORMATION
  Report Type: Spontaneous
  Country: MX (occurrence: MX)
  Receive Date: 20210129
  Receipt Date: 20210129
  Transmission Date: 20210419
  Serious: Yes (Hospitalization, Other)
  Sender: FDA-Public Use
  Company Number: MX-009507513-2101MEX013351

PATIENT
  Age: 79 Year
  Sex: Male
  Weight: 84 kg

DRUGS (4)
  1. DEXIVANT [Concomitant]
     Indication: PROPHYLAXIS
     Dosage: 1 TABLET IN THE MORNING
  2. JANUMET XR [Suspect]
     Active Substance: METFORMIN HYDROCHLORIDE\SITAGLIPTIN PHOSPHATE
     Dosage: ONE TABLET IN THE MORNING AND ONE TABLET AT NIGHT
     Route: 048
     Dates: start: 20200529, end: 20200729
  3. JANUMET XR [Suspect]
     Active Substance: METFORMIN HYDROCHLORIDE\SITAGLIPTIN PHOSPHATE
     Dosage: ONE TABLET IN THE MORNING
     Route: 048
  4. JANUMET XR [Suspect]
     Active Substance: METFORMIN HYDROCHLORIDE\SITAGLIPTIN PHOSPHATE
     Indication: BLOOD GLUCOSE ABNORMAL
     Dosage: ONE TABLET IN THE MORNING
     Route: 048
     Dates: start: 201501

REACTIONS (5)
  - Fall [Not Recovered/Not Resolved]
  - Product prescribing issue [Unknown]
  - Femur fracture [Not Recovered/Not Resolved]
  - Blood glucose increased [Recovered/Resolved]
  - Incorrect dose administered [Unknown]

NARRATIVE: CASE EVENT DATE: 201501
